FAERS Safety Report 9879893 (Version 2)
Quarter: 2014Q2

REPORT INFORMATION
  Report Type: Spontaneous
  Country: IT (occurrence: IT)
  Receive Date: 20140206
  Receipt Date: 20140403
  Transmission Date: 20141212
  Serious: Yes (Hospitalization)
  Sender: FDA-Public Use
  Company Number: IT-ROCHE-1343543

PATIENT
  Age: 63 Year
  Sex: Male

DRUGS (11)
  1. RIVOTRIL [Suspect]
     Indication: PAIN
     Route: 048
     Dates: start: 20131108, end: 20131208
  2. MATRIFEN [Suspect]
     Indication: PAIN
     Route: 062
     Dates: start: 20131108, end: 20131208
  3. DEPALGOS [Suspect]
     Indication: PAIN
     Route: 048
     Dates: start: 20131108, end: 20131208
  4. EUTIROX [Concomitant]
     Indication: HYPOTHYROIDISM
     Route: 048
     Dates: start: 20110101, end: 20131208
  5. CORDARONE [Concomitant]
     Route: 048
     Dates: start: 20110101, end: 20131208
  6. MEPRAL [Concomitant]
     Route: 048
     Dates: start: 20120101, end: 20131208
  7. CONGESCOR [Concomitant]
     Indication: HYPERTENSION
     Route: 048
     Dates: start: 20110101, end: 20131208
  8. TORVAST [Concomitant]
     Indication: DYSLIPIDAEMIA
     Route: 048
     Dates: start: 20110101, end: 20131208
  9. PLAVIX [Concomitant]
     Route: 048
     Dates: start: 20110101, end: 20131208
  10. CARDIOASPIRIN [Concomitant]
     Route: 048
     Dates: start: 20110101, end: 20131208
  11. CYMBALTA [Concomitant]
     Route: 048
     Dates: start: 20121129, end: 20131208

REACTIONS (4)
  - Bradykinesia [Recovered/Resolved]
  - Confusional state [Recovered/Resolved]
  - Bradyphrenia [Recovered/Resolved]
  - Astringent therapy [Recovered/Resolved]
